FAERS Safety Report 6231865-9 (Version None)
Quarter: 2009Q2

REPORT INFORMATION
  Report Type: 
  Country: None (occurrence: None)
  Receive Date: 20090612
  Receipt Date: 20090603
  Transmission Date: 20091009
  Serious: Yes (Other)
  Sender: FDA-Public Use
  Company Number: CHNY2009AU02288

PATIENT

DRUGS (2)
  1. GLUCOSAMINE (NCH)(GLUCOSAMINE HYDROCHLORIDE) UNKNOWN [Suspect]
  2. WARFARIN SODIUM [Suspect]

REACTIONS (2)
  - DRUG INTERACTION [None]
  - HYPHAEMA [None]
